FAERS Safety Report 5472617-7 (Version None)
Quarter: 2007Q4

REPORT INFORMATION
  Report Type: 
  Country: None (occurrence: None)
  Receive Date: 20071001
  Receipt Date: 20070216
  Transmission Date: 20080405
  Serious: No
  Sender: FDA-Public Use
  Company Number: US-ASTRAZENECA-2005UW16997

PATIENT
  Age: 67 Year
  Sex: Female
  Weight: 56.7 kg

DRUGS (6)
  1. ARIMIDEX [Suspect]
     Indication: BREAST CANCER
     Route: 048
     Dates: start: 20051105
  2. PREVACID [Concomitant]
     Indication: DYSPEPSIA
     Dosage: FOR 15 DAYS
  3. CALCIUM [Concomitant]
  4. ZANTAC [Concomitant]
  5. HORMONE REPLACEMENT THERAPY [Concomitant]
  6. RADIATION [Concomitant]

REACTIONS (33)
  - ALOPECIA [None]
  - ASTHENIA [None]
  - BACK PAIN [None]
  - BONE PAIN [None]
  - COUGH [None]
  - DEPRESSION [None]
  - DIARRHOEA [None]
  - DIZZINESS [None]
  - DRY MOUTH [None]
  - DRY SKIN [None]
  - DYSGEUSIA [None]
  - DYSPEPSIA [None]
  - EXERCISE TOLERANCE DECREASED [None]
  - FATIGUE [None]
  - FEELING COLD [None]
  - FEELING HOT [None]
  - FLATULENCE [None]
  - GASTROOESOPHAGEAL REFLUX DISEASE [None]
  - HEADACHE [None]
  - HOT FLUSH [None]
  - INFLUENZA LIKE ILLNESS [None]
  - INSOMNIA [None]
  - IRRITABLE BOWEL SYNDROME [None]
  - MOOD ALTERED [None]
  - MYALGIA [None]
  - NAUSEA [None]
  - ORAL DISCOMFORT [None]
  - PRURITUS [None]
  - SINUS CONGESTION [None]
  - SINUSITIS [None]
  - SKIN DISORDER [None]
  - VAGINAL INFECTION [None]
  - WEIGHT DECREASED [None]
